FAERS Safety Report 5536955-1 (Version None)
Quarter: 2007Q4

REPORT INFORMATION
  Report Type: 
  Country: None (occurrence: None)
  Receive Date: 20071207
  Receipt Date: 20071128
  Transmission Date: 20080405
  Serious: Yes (Disabling, Other)
  Sender: FDA-Public Use
  Company Number: GB-JNJFOC-20070904636

PATIENT
  Age: 35 Year
  Sex: Female
  Weight: 60 kg

DRUGS (6)
  1. REMICADE [Suspect]
     Indication: COLITIS ULCERATIVE
     Route: 042
  2. REMICADE [Suspect]
     Indication: POLYARTHRITIS
     Route: 042
  3. METHOTREXATE [Concomitant]
     Indication: ARTHRITIS
     Route: 048
  4. FOLIC ACID [Concomitant]
     Indication: ARTHRITIS
     Route: 048
  5. ARCOXIA [Concomitant]
     Indication: PAIN
     Route: 048
  6. ARCOXIA [Concomitant]
     Indication: ARTHRITIS
     Route: 048

REACTIONS (2)
  - NEUROLOGICAL SYMPTOM [None]
  - PARAESTHESIA [None]
